FAERS Safety Report 8948601 (Version 1)
Quarter: 2012Q4

REPORT INFORMATION
  Report Type: 
  Country: CL (occurrence: CL)
  Receive Date: 20121206
  Receipt Date: 20121206
  Transmission Date: 20130627
  Serious: Yes (Death, Hospitalization)
  Sender: FDA-Public Use
  Company Number: PHHY2012CL110259

PATIENT
  Age: 43 Year
  Sex: Male

DRUGS (2)
  1. EXFORGE [Suspect]
     Indication: HYPERTENSION
     Dosage: 1 DF, QD (160 mg vals and 10 mg amlo) QD
     Dates: end: 20120412
  2. ASPIRIN [Concomitant]

REACTIONS (5)
  - Death [Fatal]
  - Aortic rupture [Unknown]
  - Chest pain [Unknown]
  - Back pain [Unknown]
  - Cough [Unknown]
